FAERS Safety Report 13840722 (Version 2)
Quarter: 2017Q3

REPORT INFORMATION
  Report Type: Spontaneous
  Country: DE (occurrence: DE)
  Receive Date: 20170807
  Receipt Date: 20170811
  Transmission Date: 20171127
  Serious: Yes (Other)
  Sender: FDA-Public Use
  Company Number: DE-BRISTOL-MYERS SQUIBB COMPANY-BMS-2017-069171

PATIENT
  Sex: Female

DRUGS (2)
  1. OPDIVO [Suspect]
     Active Substance: NIVOLUMAB
     Indication: MALIGNANT MELANOMA
     Dosage: 3 MG/KG, Q2WK
     Route: 042
     Dates: start: 20160303
  2. YERVOY [Suspect]
     Active Substance: IPILIMUMAB
     Indication: MALIGNANT MELANOMA
     Dosage: 1 MG/KG, Q2WK
     Route: 042
     Dates: start: 20160303

REACTIONS (8)
  - Biliary cyst [Unknown]
  - Product use in unapproved indication [Unknown]
  - Product use issue [Unknown]
  - Biliary fistula [Unknown]
  - Wound infection [Unknown]
  - Bile duct stone [Unknown]
  - Respiratory disorder [Unknown]
  - Off label use [Unknown]
